APPROVED DRUG PRODUCT: CEPHRADINE
Active Ingredient: CEPHRADINE
Strength: 250MG
Dosage Form/Route: CAPSULE;ORAL
Application: A062762 | Product #001
Applicant: IVAX PHARMACEUTICALS INC SUB TEVA PHARMACEUTICALS USA
Approved: Mar 6, 1987 | RLD: No | RS: No | Type: DISCN